FAERS Safety Report 7248747-6 (Version None)
Quarter: 2011Q1

REPORT INFORMATION
  Report Type: 
  Country: None (occurrence: None)
  Receive Date: 20110128
  Receipt Date: 20101228
  Transmission Date: 20110831
  Serious: Yes (Hospitalization, Other)
  Sender: FDA-Public Use
  Company Number: US-BAYER-2011-008365

PATIENT
  Sex: Female
  Weight: 93 kg

DRUGS (16)
  1. YASMIN [Suspect]
     Indication: CONTRACEPTION
     Dosage: UNK
     Dates: start: 20000101, end: 20070101
  2. PROPOFOL [Concomitant]
  3. VESICARE [Concomitant]
     Indication: INCONTINENCE
     Dosage: 10 MG, QD
     Dates: start: 20060101, end: 20090101
  4. VASOTEC [Concomitant]
  5. TESSALON [Concomitant]
  6. HYDROCODONE [Concomitant]
  7. ENABLEX [Concomitant]
     Dosage: UNK UNK, QD
  8. ULTRACET [Concomitant]
  9. VICODIN [Concomitant]
  10. YAZ [Suspect]
     Indication: CONTRACEPTION
     Dosage: UNK
     Dates: start: 20000101, end: 20070101
  11. HUMALOG [Concomitant]
     Indication: DIABETES MELLITUS
     Dosage: UNK UNK, QD
     Dates: start: 20000101
  12. ALLERGY MEDICATION [Concomitant]
  13. ZOFRAN [Concomitant]
  14. PERCOCET [Concomitant]
  15. IBUPROFEN [Concomitant]
  16. EXCEDRIN (MIGRAINE) [Concomitant]

REACTIONS (10)
  - HYPOXIA [None]
  - HYPOTENSION [None]
  - DYSPNOEA [None]
  - PULMONARY EMBOLISM [None]
  - DEEP VEIN THROMBOSIS [None]
  - CHEST PAIN [None]
  - PALPITATIONS [None]
  - HYPERHIDROSIS [None]
  - DIARRHOEA [None]
  - SUPRAVENTRICULAR TACHYCARDIA [None]
